FAERS Safety Report 7723420-6 (Version None)
Quarter: 2011Q3

REPORT INFORMATION
  Report Type: 
  Country: None (occurrence: None)
  Receive Date: 20110901
  Receipt Date: 20110828
  Transmission Date: 20111222
  Serious: No
  Sender: FDA-Public Use
  Company Number: US-PFIZER INC-2011200286

PATIENT
  Sex: Male

DRUGS (1)
  1. CHILDREN'S ADVIL COLD [Suspect]
     Dosage: UNK
     Route: 065

REACTIONS (1)
  - EYE SWELLING [None]
